FAERS Safety Report 24416990 (Version 1)
Quarter: 2024Q4

REPORT INFORMATION
  Report Type: Spontaneous
  Country: US (occurrence: US)
  Receive Date: 20241009
  Receipt Date: 20241009
  Transmission Date: 20250115
  Serious: No
  Sender: CB FLEET
  Company Number: US-PRESTIGE-202405-US-001578

PATIENT

DRUGS (3)
  1. MONISTAT 7 [Suspect]
     Active Substance: MICONAZOLE NITRATE
     Indication: Product used for unknown indication
     Dosage: UNKNOWN
     Route: 067
  2. MONISTAT 7 [Suspect]
     Active Substance: MICONAZOLE NITRATE
     Route: 067
  3. MONISTAT 7 [Suspect]
     Active Substance: MICONAZOLE NITRATE
     Route: 067

REACTIONS (3)
  - Burning sensation [Unknown]
  - Pruritus [Unknown]
  - Pelvic pain [Unknown]
